FAERS Safety Report 9337282 (Version 1)
Quarter: 2013Q2

REPORT INFORMATION
  Report Type: Spontaneous
  Country: US (occurrence: US)
  Receive Date: 20130607
  Receipt Date: 20130607
  Transmission Date: 20140414
  Serious: Yes (Death)
  Sender: FDA-Public Use
  Company Number: US-PFIZER INC-2013171446

PATIENT
  Age: 61 Year
  Sex: Female

DRUGS (1)
  1. HEPARIN SODIUM [Suspect]
     Dosage: 5,000 UNITS/ML
     Route: 058

REACTIONS (16)
  - Heparin-induced thrombocytopenia [Fatal]
  - Thrombosis [Fatal]
  - Splenic vein thrombosis [None]
  - Mesenteric vein thrombosis [None]
  - Splenic rupture [None]
  - Pulmonary embolism [None]
  - Pancreatitis [None]
  - Portal vein thrombosis [None]
  - Hypotension [None]
  - Haemoglobin decreased [None]
  - Peritoneal haemorrhage [None]
  - Hepatic infarction [None]
  - Renal infarct [None]
  - Platelet aggregation abnormal [None]
  - Sudden death [None]
  - Haemorrhage [None]
